FAERS Safety Report 16645729 (Version 1)
Quarter: 2019Q3

REPORT INFORMATION
  Report Type: Spontaneous
  Country: FR (occurrence: FR)
  Receive Date: 20190730
  Receipt Date: 20190730
  Transmission Date: 20191004
  Serious: Yes (Death, Hospitalization)
  Sender: FDA-Public Use
  Company Number: FR-ZYDUS-039067

PATIENT
  Age: 54 Year
  Sex: Female

DRUGS (2)
  1. PARACETAMOL [Suspect]
     Active Substance: ACETAMINOPHEN
     Indication: PAIN
     Dates: start: 20160118
  2. TRAMADOL. [Suspect]
     Active Substance: TRAMADOL
     Indication: PAIN
     Dosage: IF PAIN
     Route: 048
     Dates: start: 20160118

REACTIONS (1)
  - Hepatitis fulminant [Fatal]

NARRATIVE: CASE EVENT DATE: 20160201
